FAERS Safety Report 25195893 (Version 1)
Quarter: 2025Q2

REPORT INFORMATION
  Report Type: Spontaneous
  Country: US (occurrence: US)
  Receive Date: 20250415
  Receipt Date: 20250415
  Transmission Date: 20250716
  Serious: No
  Sender: SANOFI AVENTIS
  Company Number: US-SA-2025SA105012

PATIENT
  Sex: Female

DRUGS (17)
  1. DUPIXENT [Suspect]
     Active Substance: DUPILUMAB
     Indication: Dermatitis atopic
  2. ALBUTEROL SULFATE [Concomitant]
     Active Substance: ALBUTEROL SULFATE
  3. ATORVASTATIN [Concomitant]
     Active Substance: ATORVASTATIN
  4. CYCLOSPORINE [Concomitant]
     Active Substance: CYCLOSPORINE
  5. EPINEPHRINE [Concomitant]
     Active Substance: EPINEPHRINE
  6. FLUOCINONIDE [Concomitant]
     Active Substance: FLUOCINONIDE
  7. FLUOCINONIDE [Concomitant]
     Active Substance: FLUOCINONIDE
  8. Histdao [Concomitant]
  9. HYDROXYZINE [Concomitant]
     Active Substance: HYDROXYZINE HYDROCHLORIDE
  10. IVIZIA DRY EYE [Concomitant]
     Active Substance: POVIDONE
  11. LORATADINE [Concomitant]
     Active Substance: LORATADINE
  12. METFORMIN HYDROCHLORIDE [Concomitant]
     Active Substance: METFORMIN HYDROCHLORIDE
  13. METHOCARBAMOL [Concomitant]
     Active Substance: METHOCARBAMOL
  14. MONTELUKAST [Concomitant]
     Active Substance: MONTELUKAST
  15. OMEGA-3 ACIDS [Concomitant]
     Active Substance: OMEGA-3 FATTY ACIDS
  16. PROBIOTICS NOS [Concomitant]
     Active Substance: PROBIOTICS NOS
  17. WIXELA INHUB [Concomitant]
     Active Substance: FLUTICASONE PROPIONATE\SALMETEROL XINAFOATE

REACTIONS (2)
  - Rash [Not Recovered/Not Resolved]
  - Therapeutic response decreased [Not Recovered/Not Resolved]
